FAERS Safety Report 21963908 (Version 1)
Quarter: 2023Q1

REPORT INFORMATION
  Report Type: Spontaneous
  Country: US (occurrence: None)
  Receive Date: 20230206
  Receipt Date: 20230206
  Transmission Date: 20230418
  Serious: No
  Sender: FDA-Public Use
  Company Number: None

PATIENT
  Sex: Male

DRUGS (1)
  1. OTEZLA [Suspect]
     Active Substance: APREMILAST
     Indication: Psoriasis
     Dosage: FREQUENCY : TWICE A DAY;?
     Route: 048
     Dates: start: 20200122

REACTIONS (6)
  - Therapeutic product effect decreased [None]
  - Psoriasis [None]
  - Pruritus [None]
  - Rash [None]
  - Rash [None]
  - Sensitivity to weather change [None]
